FAERS Safety Report 20313096 (Version 3)
Quarter: 2022Q1

REPORT INFORMATION
  Report Type: Report from Study
  Country: FR (occurrence: FR)
  Receive Date: 20220109
  Receipt Date: 20220310
  Transmission Date: 20220423
  Serious: Yes (Hospitalization, Other)
  Sender: FDA-Public Use
  Company Number: FR-SERVIER-S21012878

PATIENT

DRUGS (13)
  1. PEGASPARGASE [Suspect]
     Active Substance: PEGASPARGASE
     Indication: Acute lymphocytic leukaemia
     Dosage: 3760 IU, D6
     Route: 042
     Dates: start: 20211109, end: 20211109
  2. DEXAMETHASONE [Suspect]
     Active Substance: DEXAMETHASONE
     Indication: Acute lymphocytic leukaemia
     Dosage: 32 MG, D1 TO D6
     Route: 037
     Dates: start: 20211104, end: 20211109
  3. MITOXANTRONE HYROCHLORIDE [Suspect]
     Active Substance: MITOXANTRONE HYDROCHLORIDE
     Indication: Acute lymphocytic leukaemia
     Dosage: 13 MG, D3 TO D4
     Route: 042
     Dates: start: 20211106, end: 20211107
  4. ENALAPRIL MALEATE [Suspect]
     Active Substance: ENALAPRIL MALEATE
     Indication: Cardiac failure
     Dosage: 2.5 MG, OTHER
     Route: 048
     Dates: start: 20211104, end: 20211112
  5. CYTARABINE [Suspect]
     Active Substance: CYTARABINE
     Indication: Acute lymphocytic leukaemia
     Dosage: 6560 MG, D1 TO D2
     Route: 042
     Dates: start: 20211104, end: 20211105
  6. CYTARABINE [Suspect]
     Active Substance: CYTARABINE
     Dosage: 30 MG, ON D5
     Route: 037
     Dates: start: 20211108, end: 20211108
  7. ETOPOSIDE [Suspect]
     Active Substance: ETOPOSIDE
     Indication: Acute lymphocytic leukaemia
     Dosage: 123 MG, D3 TO D5
     Route: 042
     Dates: start: 20211106, end: 20211108
  8. METHOTREXATE [Suspect]
     Active Substance: METHOTREXATE
     Indication: Acute lymphocytic leukaemia
     Dosage: 15 MG, D5
     Route: 037
     Dates: start: 20211108, end: 20211108
  9. TN UNSPECIFIED [Concomitant]
     Indication: Acute lymphocytic leukaemia
     Dosage: 15 MG, D5
     Route: 037
     Dates: start: 20211108, end: 20211108
  10. COTRIMOXAZOLE [Concomitant]
     Active Substance: SULFAMETHOXAZOLE\TRIMETHOPRIM
     Indication: Antifungal prophylaxis
     Dosage: 800 MG
     Route: 048
     Dates: start: 20210625
  11. TN UNSPECIFIED [Concomitant]
     Indication: Vomiting
     Dosage: 16 MG
     Route: 048
     Dates: start: 20210626
  12. TN UNSPECIFIED [Concomitant]
     Indication: Back pain
     Dosage: 2250 MG
     Route: 042
     Dates: start: 20210628
  13. TN UNSPECIFIED [Concomitant]
     Indication: Abdominal pain

REACTIONS (4)
  - Hyponatraemia [Recovered/Resolved]
  - Hypotension [Not Recovered/Not Resolved]
  - Septic shock [Not Recovered/Not Resolved]
  - Staphylococcal sepsis [Not Recovered/Not Resolved]

NARRATIVE: CASE EVENT DATE: 20211112
